FAERS Safety Report 17681554 (Version 2)
Quarter: 2020Q2

REPORT INFORMATION
  Report Type: Report from Study
  Country: GB (occurrence: GB)
  Receive Date: 20200417
  Receipt Date: 20200518
  Transmission Date: 20200714
  Serious: Yes (Other)
  Sender: FDA-Public Use
  Company Number: NVSC2020GB098314

PATIENT
  Sex: Male

DRUGS (3)
  1. HYRIMOZ [Suspect]
     Active Substance: ADALIMUMAB-ADAZ
     Dosage: 40 MG/0.8 ML ASD
     Route: 058
     Dates: start: 20200221
  2. HYRIMOZ [Suspect]
     Active Substance: ADALIMUMAB-ADAZ
     Dosage: 40 MG, Q2W
     Route: 058
     Dates: start: 20200226
  3. HYRIMOZ [Suspect]
     Active Substance: ADALIMUMAB-ADAZ
     Indication: CROHN^S DISEASE
     Dosage: 160 MG WEEK 0, 80 MG WEEK 2, 40MG WEEK 4, 40 MG EVERY OTHER WEEK
     Route: 065

REACTIONS (3)
  - Loss of libido [Unknown]
  - Erectile dysfunction [Unknown]
  - Tinea pedis [Unknown]
